FAERS Safety Report 8987938 (Version 2)
Quarter: 2013Q1

REPORT INFORMATION
  Report Type: Spontaneous
  Country: IT (occurrence: IT)
  Receive Date: 20121227
  Receipt Date: 20130125
  Transmission Date: 20140127
  Serious: Yes (Hospitalization)
  Sender: FDA-Public Use
  Company Number: IT-TEVA-376955ISR

PATIENT
  Age: 81 Year
  Sex: Female

DRUGS (4)
  1. CARBOLITHIUM [Suspect]
     Dosage: 2 DOSAGE FORMS DAILY; 300 MG
     Route: 048
     Dates: start: 20120101, end: 20120719
  2. TIKLID [Concomitant]
     Dosage: 250 MG
  3. VALPRESSION [Concomitant]
     Dosage: 1 DOSAGE FORMS DAILY; 40MG
     Route: 048
  4. GABAPENTIN [Concomitant]
     Dosage: 900 MILLIGRAM DAILY;
     Route: 048

REACTIONS (4)
  - Sopor [Recovered/Resolved]
  - Antipsychotic drug level above therapeutic [Recovered/Resolved]
  - Insomnia [Recovered/Resolved]
  - Restlessness [Recovered/Resolved]
